FAERS Safety Report 8144059-7 (Version None)
Quarter: 2012Q1

REPORT INFORMATION
  Report Type: 
  Country: None (occurrence: None)
  Receive Date: 20120217
  Receipt Date: 20120207
  Transmission Date: 20120608
  Serious: Yes (Other)
  Sender: FDA-Public Use
  Company Number: US-SANOFI-AVENTIS-2012SA007982

PATIENT
  Age: 79 Year
  Sex: Female

DRUGS (6)
  1. NEURONTIN [Concomitant]
  2. LOPRESSOR [Concomitant]
  3. ATIVAN [Concomitant]
  4. PERCOCET [Concomitant]
  5. PLAVIX [Suspect]
  6. ASPIRIN [Suspect]

REACTIONS (3)
  - CONDITION AGGRAVATED [None]
  - HAEMORRHAGE [None]
  - CAROTID ARTERY OCCLUSION [None]
